FAERS Safety Report 4812201-9 (Version None)
Quarter: 2005Q4

REPORT INFORMATION
  Report Type: 
  Country: None (occurrence: None)
  Receive Date: 20051028
  Receipt Date: 20040914
  Transmission Date: 20060501
  Serious: No
  Sender: FDA-Public Use
  Company Number: US-GLAXOSMITHKLINE-A0525617A

PATIENT
  Age: 78 Year
  Sex: Male

DRUGS (20)
  1. ADVAIR DISKUS 100/50 [Suspect]
     Indication: ASTHMA
     Dosage: 1PUFF TWICE PER DAY
     Route: 055
  2. FUROSEMIDE [Concomitant]
  3. COUMADIN [Concomitant]
  4. ASACOL [Concomitant]
  5. ATENOLOL [Concomitant]
  6. DETROL LA [Concomitant]
  7. CLARINEX [Concomitant]
  8. GLYBURIDE [Concomitant]
  9. DIGOXIN [Concomitant]
  10. MAGNESIUM [Concomitant]
  11. POTASSIUM [Concomitant]
  12. PHENYTOIN [Concomitant]
  13. SYNTHROID [Concomitant]
  14. SPIRONOLACTONE [Concomitant]
  15. ZETIA [Concomitant]
  16. TRICOR [Concomitant]
  17. ZOCOR [Concomitant]
  18. HOMOCYSTEINE (MULTIVIT) [Concomitant]
  19. FISH OIL [Concomitant]
  20. EYE DROPS [Concomitant]

REACTIONS (2)
  - DYSPNOEA [None]
  - PHARMACEUTICAL PRODUCT COMPLAINT [None]
